FAERS Safety Report 15153782 (Version 2)
Quarter: 2019Q2

REPORT INFORMATION
  Report Type: Spontaneous
  Country: US (occurrence: US)
  Receive Date: 20180717
  Receipt Date: 20190515
  Transmission Date: 20190711
  Serious: Yes (Hospitalization, Other)
  Sender: FDA-Public Use
  Company Number: US-SA-2018SA191780

PATIENT
  Sex: Female

DRUGS (6)
  1. AUBAGIO [Suspect]
     Active Substance: TERIFLUNOMIDE
     Dosage: 14 MG, QD
     Route: 048
     Dates: start: 201502
  2. COLCHICINE. [Concomitant]
     Active Substance: COLCHICINE
  3. FLUCONAZOLE. [Concomitant]
     Active Substance: FLUCONAZOLE
  4. IBUPROFEN. [Concomitant]
     Active Substance: IBUPROFEN
  5. CLOTRIMAZOLE. [Concomitant]
     Active Substance: CLOTRIMAZOLE
  6. CICLOPIROX. [Concomitant]
     Active Substance: CICLOPIROX

REACTIONS (1)
  - Multiple sclerosis relapse [Unknown]
